FAERS Safety Report 5618174-3 (Version None)
Quarter: 2008Q1

REPORT INFORMATION
  Report Type: 
  Country: None (occurrence: None)
  Receive Date: 20080207
  Receipt Date: 20071105
  Transmission Date: 20080703
  Serious: No
  Sender: FDA-Public Use
  Company Number: A0693987A

PATIENT
  Sex: Male

DRUGS (1)
  1. PAROXETINE [Suspect]
     Indication: MAJOR DEPRESSION
     Route: 065

REACTIONS (1)
  - THERAPEUTIC RESPONSE DECREASED [None]
